FAERS Safety Report 9719963 (Version 7)
Quarter: 2014Q1

REPORT INFORMATION
  Report Type: Report from Study
  Country: US (occurrence: US)
  Receive Date: 20131128
  Receipt Date: 20140211
  Transmission Date: 20141002
  Serious: Yes (Hospitalization)
  Sender: FDA-Public Use
  Company Number: US-JNJFOC-20131116051

PATIENT
  Age: 13 Year
  Sex: Male
  Weight: 35.3 kg

DRUGS (1)
  1. REMICADE [Suspect]
     Indication: INFLAMMATORY BOWEL DISEASE
     Route: 042
     Dates: start: 20080117, end: 20081010

REACTIONS (2)
  - Thrombosis in device [Recovered/Resolved]
  - Cellulitis [Recovered/Resolved]
